FAERS Safety Report 15713660 (Version 3)
Quarter: 2020Q1

REPORT INFORMATION
  Report Type: Spontaneous
  Country: CH (occurrence: CH)
  Receive Date: 20181212
  Receipt Date: 20200304
  Transmission Date: 20200409
  Serious: Yes (Life-Threatening, Hospitalization, Other)
  Sender: FDA-Public Use
  Company Number: CH-PFIZER INC-2018507192

PATIENT
  Sex: Female

DRUGS (8)
  1. LIDOCAINE. [Suspect]
     Active Substance: LIDOCAINE
     Dosage: UNK
     Route: 064
     Dates: start: 20181126, end: 20181126
  2. LIORESAL [Concomitant]
     Active Substance: BACLOFEN
     Dosage: 60 MG, 2X/DAY
     Route: 064
     Dates: end: 201802
  3. TEMESTA (LORAZEPAM) [Suspect]
     Active Substance: LORAZEPAM
     Dosage: 1 MG, SINGLE (IN TOTAL)
     Route: 064
     Dates: start: 20181126, end: 20181126
  4. SANALEPSI N [Suspect]
     Active Substance: DOXYLAMINE SUCCINATE
     Dosage: 10-15 GTTS, DAILY
     Route: 064
     Dates: start: 20181126, end: 20181126
  5. BUPIVACAINE. [Suspect]
     Active Substance: BUPIVACAINE
     Dosage: UNK
     Route: 064
     Dates: start: 20181126, end: 20181126
  6. ADLER FERRUPLEX [HOMEOPATHICS] [Suspect]
     Active Substance: HOMEOPATHICS
     Dosage: UNK UNK, 3X/DAY
  7. RANITIDINE. [Concomitant]
     Active Substance: RANITIDINE
     Dosage: UNK
     Route: 064
     Dates: start: 20181126
  8. CYMBALTA [Suspect]
     Active Substance: DULOXETINE HYDROCHLORIDE
     Indication: BORDERLINE PERSONALITY DISORDER
     Dosage: 120 MG, 1X/DAY
     Route: 064

REACTIONS (6)
  - Neonatal respiratory acidosis [Recovered/Resolved]
  - Maternal exposure during pregnancy [Recovered/Resolved]
  - Hyperlactacidaemia [Recovered/Resolved]
  - Foetal biophysical profile score [Recovered/Resolved]
  - Hypotonia [Recovered/Resolved]
  - Bradypnoea [Recovered/Resolved]

NARRATIVE: CASE EVENT DATE: 20181126
